FAERS Safety Report 6490844-7 (Version None)
Quarter: 2009Q4

REPORT INFORMATION
  Report Type: 
  Country: None (occurrence: None)
  Receive Date: 20091124
  Receipt Date: 20090413
  Transmission Date: 20100525
  Serious: Yes (Other)
  Sender: FDA-Public Use
  Company Number: 281226

PATIENT
  Age: 60 Year
  Sex: Female
  Weight: 87.5 kg

DRUGS (5)
  1. HERCEPTIN [Suspect]
     Indication: BREAST CANCER METASTATIC
     Dosage: INTRAVENOUS
     Route: 042
     Dates: start: 20080901, end: 20090301
  2. ARIMIDEX [Concomitant]
  3. DOCETAXEL [Concomitant]
  4. DOXORUBICIN (DOXORUBICIN/DOXORUBICINE HYDROCHLORIDE) [Concomitant]
  5. CYCLOPHOSPHAMIDE [Concomitant]

REACTIONS (1)
  - EJECTION FRACTION DECREASED [None]
